FAERS Safety Report 7720303-2 (Version None)
Quarter: 2011Q3

REPORT INFORMATION
  Report Type: 
  Country: None (occurrence: None)
  Receive Date: 20110831
  Receipt Date: 20110830
  Transmission Date: 20111222
  Serious: No
  Sender: FDA-Public Use
  Company Number: US-PFIZER INC-2011202160

PATIENT
  Sex: Female
  Weight: 79.3 kg

DRUGS (3)
  1. PRISTIQ [Suspect]
     Indication: BIPOLAR DISORDER
     Dosage: 50 MG, DAILY
     Route: 048
     Dates: start: 20110701
  2. GEODON [Concomitant]
     Indication: AFFECTIVE DISORDER
     Dosage: 40 MG
     Dates: start: 20110701
  3. XANAX [Concomitant]
     Indication: MANIA
     Dosage: 1 MG, AS NEEDED

REACTIONS (1)
  - URTICARIA [None]
